FAERS Safety Report 5041215-1 (Version None)
Quarter: 2006Q3

REPORT INFORMATION
  Report Type: 
  Country: None (occurrence: None)
  Receive Date: 20060703
  Receipt Date: 20060515
  Transmission Date: 20061208
  Serious: Yes (Hospitalization)
  Sender: FDA-Public Use
  Company Number: GB-GLAXOSMITHKLINE-B0423824A

PATIENT
  Age: 20 Year
  Sex: Male

DRUGS (3)
  1. SEROXAT [Suspect]
     Indication: DRUG USE FOR UNKNOWN INDICATION
     Dosage: 20MG UNKNOWN
     Route: 048
     Dates: start: 20020601
  2. DIAZEPAM [Concomitant]
     Dosage: 8MG AT NIGHT
     Route: 065
  3. OLANZAPINE [Concomitant]
     Dosage: 7.5MG AT NIGHT
     Route: 065

REACTIONS (2)
  - INTENTIONAL SELF-INJURY [None]
  - SUICIDE ATTEMPT [None]
